FAERS Safety Report 5856932-0 (Version None)
Quarter: 2008Q3

REPORT INFORMATION
  Report Type: 
  Country: None (occurrence: None)
  Receive Date: 20080825
  Receipt Date: 20080818
  Transmission Date: 20090109
  Serious: Yes (Other)
  Sender: FDA-Public Use
  Company Number: US-BAYER-200812786BCC

PATIENT

DRUGS (2)
  1. ASPIRIN [Suspect]
  2. PLAVIX [Suspect]
     Indication: DRUG USE FOR UNKNOWN INDICATION

REACTIONS (2)
  - THROMBOSIS [None]
  - UNEVALUABLE EVENT [None]
